FAERS Safety Report 4463153-5 (Version None)
Quarter: 2004Q3

REPORT INFORMATION
  Report Type: 
  Country: None (occurrence: None)
  Receive Date: 20040928
  Receipt Date: 20040915
  Transmission Date: 20050211
  Serious: Yes (Other)
  Sender: FDA-Public Use
  Company Number: 2004067577

PATIENT
  Age: 67 Year
  Sex: Male

DRUGS (3)
  1. FLUCONAZOLE [Suspect]
     Indication: PNEUMONIA
     Dosage: INTRAVENOUS
     Route: 042
  2. CYTARABINE [Suspect]
     Indication: MYELODYSPLASTIC SYNDROME
     Dosage: 30 MG (15 MG, 2 IN 1 D)
  3. PANIPENEM (PANIPENEM) [Suspect]
     Indication: PNEUMONIA
     Dosage: INTRAVENOUS
     Route: 042

REACTIONS (5)
  - BLOOD ELASTASE INCREASED [None]
  - BONE MARROW DEPRESSION [None]
  - PANCREATIC ENZYMES INCREASED [None]
  - PANCREATITIS [None]
  - PNEUMONIA [None]
